FAERS Safety Report 9360061 (Version 1)
Quarter: 2013Q2

REPORT INFORMATION
  Report Type: Spontaneous
  Country: US (occurrence: US)
  Receive Date: 20130621
  Receipt Date: 20130621
  Transmission Date: 20140414
  Serious: No
  Sender: FDA-Public Use
  Company Number: US-PFIZER INC-2013185223

PATIENT
  Sex: Female

DRUGS (8)
  1. LYRICA [Suspect]
     Dosage: UNK
  2. NUBAIN [Suspect]
     Dosage: UNK
  3. STADOL [Suspect]
     Dosage: UNK
  4. TOPAMAX [Suspect]
     Dosage: UNK
  5. TRAZODONE [Suspect]
     Dosage: UNK
  6. NEFAZODONE [Suspect]
     Dosage: UNK
  7. ULTRAM [Suspect]
     Dosage: UNK
  8. WELLBUTRIN [Suspect]
     Dosage: UNK

REACTIONS (1)
  - Drug hypersensitivity [Unknown]
